FAERS Safety Report 8298607-7 (Version None)
Quarter: 2012Q2

REPORT INFORMATION
  Report Type: 
  Country: None (occurrence: None)
  Receive Date: 20120419
  Receipt Date: 20120413
  Transmission Date: 20120825
  Serious: Yes (Hospitalization)
  Sender: FDA-Public Use
  Company Number: US-PFIZER INC-2012074575

PATIENT
  Sex: Female
  Weight: 105 kg

DRUGS (14)
  1. CELESTAMINE TAB [Concomitant]
     Indication: DIARRHOEA
  2. HYDROXYZINE [Concomitant]
  3. METHYLPREDNISOLONE ACETATE [Suspect]
     Indication: BRONCHITIS
     Dosage: ONCE, INJECTION
     Dates: start: 20120110, end: 20120110
  4. VITAMIN TAB [Concomitant]
     Route: 048
  5. OXYGEN [Concomitant]
     Dosage: AT NIGHT
     Route: 055
  6. ZITHROMAX [Concomitant]
     Indication: BRONCHITIS
     Dosage: UNK
     Route: 042
     Dates: start: 20120110
  7. ZANTAC [Concomitant]
     Indication: ABDOMINAL DISCOMFORT
     Dosage: UNK
  8. METHYLPREDNISOLONE [Suspect]
     Indication: BRONCHITIS
     Dosage: 4 MG, UNK
     Route: 048
     Dates: start: 20120112, end: 20120101
  9. ALBUTEROL [Concomitant]
     Indication: BRONCHITIS
     Dosage: UNK
     Route: 055
  10. BACLOFEN [Concomitant]
  11. CHOLESTYRAMINE [Concomitant]
  12. CELESTAMINE TAB [Concomitant]
     Indication: BLOOD CHOLESTEROL INCREASED
     Dosage: UNK
  13. ASPIRIN [Concomitant]
     Dosage: 81 MG, UNK
     Route: 048
  14. NIACIN [Concomitant]

REACTIONS (2)
  - CEREBROVASCULAR ACCIDENT [None]
  - ANXIETY [None]
